FAERS Safety Report 24412863 (Version 1)
Quarter: 2024Q4

REPORT INFORMATION
  Report Type: Spontaneous
  Country: SE (occurrence: SE)
  Receive Date: 20241008
  Receipt Date: 20241008
  Transmission Date: 20250115
  Serious: Yes (Hospitalization)
  Sender: PFIZER
  Company Number: None

PATIENT
  Age: 67 Year
  Sex: Male

DRUGS (1)
  1. SPIRONOLACTONE [Suspect]
     Active Substance: SPIRONOLACTONE
     Dosage: 100 MG, 1X/DAY

REACTIONS (1)
  - Dizziness postural [Unknown]

NARRATIVE: CASE EVENT DATE: 20240618
